FAERS Safety Report 4712423-1 (Version None)
Quarter: 2005Q3

REPORT INFORMATION
  Report Type: 
  Country: None (occurrence: None)
  Receive Date: 20050711
  Receipt Date: 20030314
  Transmission Date: 20060218
  Serious: Yes (Death, Hospitalization, Other)
  Sender: FDA-Public Use
  Company Number: 170858

PATIENT
  Sex: Female

DRUGS (1)
  1. AVONEX [Suspect]
     Indication: MULTIPLE SCLEROSIS
     Dosage: IM
     Route: 030
     Dates: start: 19990528

REACTIONS (5)
  - CONDITION AGGRAVATED [None]
  - DIALYSIS [None]
  - MULTIPLE MYELOMA [None]
  - MULTIPLE SCLEROSIS [None]
  - RENAL FAILURE [None]
